FAERS Safety Report 11672831 (Version 1)
Quarter: 2015Q4

REPORT INFORMATION
  Report Type: Spontaneous
  Country: US (occurrence: US)
  Receive Date: 20151027
  Receipt Date: 20151027
  Transmission Date: 20160304
  Serious: No
  Sender: FDA-Public Use
  Company Number: US-ELI_LILLY_AND_COMPANY-US201007001246

PATIENT
  Age: 21 Year
  Sex: Male

DRUGS (1)
  1. FORTEO [Suspect]
     Active Substance: TERIPARATIDE
     Indication: BONE PAIN
     Dosage: 20 UG, DAILY (1/D)

REACTIONS (15)
  - Off label use [Unknown]
  - Feeling abnormal [Unknown]
  - Drug ineffective [Unknown]
  - Nausea [Unknown]
  - Fatigue [Unknown]
  - Injection site bruising [Unknown]
  - Bone pain [Not Recovered/Not Resolved]
  - Muscular weakness [Unknown]
  - Diarrhoea [Unknown]
  - Pain [Unknown]
  - Injection site reaction [Unknown]
  - Musculoskeletal chest pain [Unknown]
  - Constipation [Unknown]
  - Hot flush [Unknown]
  - Feeling cold [Unknown]
